FAERS Safety Report 9789285 (Version 1)
Quarter: 2013Q4

REPORT INFORMATION
  Report Type: Spontaneous
  Country: DK (occurrence: DK)
  Receive Date: 20131231
  Receipt Date: 20131231
  Transmission Date: 20140711
  Serious: Yes (Other)
  Sender: FDA-Public Use
  Company Number: DK-ACTAVIS-2013-23581

PATIENT
  Age: 41 Year
  Sex: Female

DRUGS (7)
  1. FLUCONAZOLE (UNKNOWN) [Suspect]
     Indication: ORAL CANDIDIASIS
     Dosage: 100 MG X 1 IN 10-DAY COURSES IN CONNECTION WITH THE TREATMENT CYCLES
     Route: 065
  2. VINCRISTINE (UNKNOWN) [Interacting]
     Indication: EWING^S SARCOMA
     Dosage: 2 MG; SIX CYCLES AT THREE-WEEK INTERVALS
     Route: 065
  3. ETOPOSIDE (UNKNOWN) [Interacting]
     Indication: EWING^S SARCOMA
     Dosage: 300 MG/ 3 DAYS; THEN REDUCED
     Route: 065
  4. PREDNISOLONE (UNKNOWN) [Interacting]
     Indication: PRODUCT USED FOR UNKNOWN INDICATION
     Dosage: UNK
     Route: 065
  5. MIRTAZAPINE (UNKNOWN) [Interacting]
     Indication: PRODUCT USED FOR UNKNOWN INDICATION
     Dosage: UNK
     Route: 065
  6. IFOSFAMIDE [Interacting]
     Indication: EWING^S SARCOMA
     Dosage: 6 G/ 3 DAYS;FOR FOUR CYCLES
     Route: 065
  7. DOXORUBICIN [Concomitant]
     Indication: EWING^S SARCOMA
     Dosage: 40 MG/ 3 DAYS, THEN REDUCED
     Route: 065

REACTIONS (3)
  - Motor dysfunction [Recovering/Resolving]
  - Paraesthesia [Recovering/Resolving]
  - Drug interaction [Unknown]
